FAERS Safety Report 8274267-6 (Version None)
Quarter: 2012Q2

REPORT INFORMATION
  Report Type: 
  Country: None (occurrence: None)
  Receive Date: 20120411
  Receipt Date: 20120411
  Transmission Date: 20120825
  Serious: Yes (Other)
  Sender: FDA-Public Use
  Company Number: None

PATIENT
  Age: 32 Year
  Sex: Female
  Weight: 108.86 kg

DRUGS (1)
  1. METFORMIN HCL [Suspect]
     Indication: INSULIN RESISTANCE
     Dosage: 500 MG T
     Route: 048
     Dates: start: 20110710, end: 20120214

REACTIONS (3)
  - NAUSEA [None]
  - ALOPECIA [None]
  - DIZZINESS [None]
